FAERS Safety Report 7002795-X (Version None)
Quarter: 2010Q3

REPORT INFORMATION
  Report Type: 
  Country: None (occurrence: None)
  Receive Date: 20100902
  Receipt Date: 20100607
  Transmission Date: 20110219
  Serious: Yes (Disabling, Other)
  Sender: FDA-Public Use
  Company Number: 232056USA

PATIENT
  Sex: Female

DRUGS (2)
  1. METOCLOPRAMIDE [Suspect]
     Indication: VOMITING IN PREGNANCY
     Dosage: AS NEEDED (10 MG, 1 IN 4 HR), ORAL
     Route: 048
     Dates: start: 20080715
  2. PRENATAL VITMAINS [Concomitant]

REACTIONS (5)
  - BLOOD PRESSURE INCREASED [None]
  - DEHYDRATION [None]
  - DYSKINESIA [None]
  - MUSCLE TWITCHING [None]
  - PREMATURE LABOUR [None]
